FAERS Safety Report 7336963-4 (Version None)
Quarter: 2011Q1

REPORT INFORMATION
  Report Type: 
  Country: None (occurrence: None)
  Receive Date: 20110228
  Receipt Date: 20110210
  Transmission Date: 20110831
  Serious: Yes (Other)
  Sender: FDA-Public Use
  Company Number: DSA_44985_2011

PATIENT

DRUGS (1)
  1. TETRABENAZINE [Suspect]
     Indication: HUNTINGTON'S DISEASE
     Dosage: UNSPECIFIED TITRATING DOSE, 12.5 MG QD

REACTIONS (2)
  - POST PROCEDURAL COMPLICATION [None]
  - AGITATION [None]
